FAERS Safety Report 12822716 (Version 1)
Quarter: 2016Q4

REPORT INFORMATION
  Report Type: Other
  Country: CA (occurrence: CA)
  Receive Date: 20161007
  Receipt Date: 20161007
  Transmission Date: 20170207
  Serious: Yes (Other)
  Sender: FDA-Public Use
  Company Number: CA-APOTEX-2016AP012558

PATIENT
  Age: 64 Year
  Sex: Female
  Weight: 108.84 kg

DRUGS (1)
  1. APO-ROSUVASTATIN [Suspect]
     Active Substance: ROSUVASTATIN
     Indication: BLOOD CHOLESTEROL INCREASED
     Dosage: 5 MG, UNK
     Route: 065

REACTIONS (4)
  - Product substitution issue [Recovered/Resolved]
  - Exposure to toxic agent [Recovered/Resolved]
  - Postmenopausal haemorrhage [Recovered/Resolved]
  - Rash [Recovered/Resolved]
